FAERS Safety Report 5403617-0 (Version None)
Quarter: 2007Q3

REPORT INFORMATION
  Report Type: 
  Country: None (occurrence: None)
  Receive Date: 20070802
  Receipt Date: 20070728
  Transmission Date: 20080115
  Serious: Yes (Other)
  Sender: FDA-Public Use
  Company Number: PHEH2007US02759

PATIENT
  Age: 41 Year
  Sex: Male

DRUGS (4)
  1. DIOVAN HCT [Suspect]
     Indication: HYPERTENSION
     Dosage: 80MG VAL / 12.5MG HCT, QD
     Route: 048
     Dates: start: 20070221, end: 20070301
  2. EXCEDRIN [Concomitant]
     Dosage: UNK, UNK
  3. SINUTAB [Concomitant]
     Dosage: UNK, UNK
  4. ASPIRIN [Concomitant]

REACTIONS (7)
  - BLOOD PRESSURE INADEQUATELY CONTROLLED [None]
  - CHEST PAIN [None]
  - DIZZINESS [None]
  - HYPERTENSION [None]
  - LOSS OF CONSCIOUSNESS [None]
  - NIGHTMARE [None]
  - PAIN IN EXTREMITY [None]
